FAERS Safety Report 19171543 (Version 1)
Quarter: 2021Q2

REPORT INFORMATION
  Report Type: Spontaneous
  Country: FR (occurrence: FR)
  Receive Date: 20210423
  Receipt Date: 20210423
  Transmission Date: 20210717
  Serious: Yes (Hospitalization)
  Sender: FDA-Public Use
  Company Number: FR-BAUSCH-BL-2021-013594

PATIENT
  Age: 74 Year
  Sex: Male
  Weight: 92 kg

DRUGS (6)
  1. TAZOBACTAM [Suspect]
     Active Substance: TAZOBACTAM
     Indication: ERYSIPELAS
     Route: 042
     Dates: start: 20190731, end: 20190802
  2. DALACINE [Suspect]
     Active Substance: CLINDAMYCIN
     Indication: ERYSIPELAS
     Dosage: SOLUTION INJECTABLE (300 MG 2/DAY EVERY 8 HOURS)
     Route: 042
     Dates: start: 20190726, end: 20190731
  3. DALACINE [Suspect]
     Active Substance: CLINDAMYCIN
     Indication: ERYSIPELAS
     Dosage: SOLUTION INJECTABLE
     Route: 042
     Dates: start: 20190805, end: 20190809
  4. GENTAMICINE [Suspect]
     Active Substance: GENTAMICIN
     Indication: ERYSIPELAS
     Dosage: DOSAGE: TOTAL
     Route: 042
     Dates: start: 20190731, end: 20190731
  5. PIPERACILLINE BASE [Suspect]
     Active Substance: PIPERACILLIN SODIUM
     Indication: ERYSIPELAS
     Route: 042
     Dates: start: 20190731, end: 20190802
  6. PENICILLINE G PANPHARMA [Suspect]
     Active Substance: PENICILLIN G SODIUM
     Indication: ERYSIPELAS
     Route: 042
     Dates: start: 20190802, end: 20190809

REACTIONS (1)
  - Rash maculo-papular [Recovered/Resolved]

NARRATIVE: CASE EVENT DATE: 20190809
